FAERS Safety Report 11317684 (Version 2)
Quarter: 2015Q3

REPORT INFORMATION
  Report Type: Spontaneous
  Country: FR (occurrence: FR)
  Receive Date: 20150728
  Receipt Date: 20150910
  Transmission Date: 20151125
  Serious: Yes (Hospitalization)
  Sender: FDA-Public Use
  Company Number: FR-SA-2015SA110455

PATIENT
  Age: 79 Year
  Sex: Female

DRUGS (9)
  1. LERCAN [Interacting]
     Active Substance: LERCANIDIPINE
     Indication: HYPERTENSION
     Dosage: LERCAN  20  MG,  THERAPY START: LONG TERM
     Route: 048
  2. TERCIAN [Concomitant]
     Active Substance: CYAMEMAZINE
     Dosage: STRENGTH: 40 (UNITS UNSPECIFIED)
  3. TRIATEC [Interacting]
     Active Substance: RAMIPRIL
     Indication: HYPERTENSION
     Dosage: THERAPY START: LONG TERM
     Route: 048
     Dates: end: 20150209
  4. LASILIX [Suspect]
     Active Substance: FUROSEMIDE
     Indication: HYPERTENSION
     Dosage: THERAPY START: LONG TERM
     Route: 048
     Dates: end: 20150209
  5. DIFFU K [Concomitant]
     Active Substance: POTASSIUM CHLORIDE
     Dates: end: 201502
  6. HUMALOG [Concomitant]
     Active Substance: INSULIN LISPRO
     Dosage: STRENGTH: 100 MG
  7. NOVONORM [Concomitant]
     Active Substance: REPAGLINIDE
     Dosage: STRENGTH: 2 MG
  8. CELIPROLOL [Interacting]
     Active Substance: CELIPROLOL
     Indication: HYPERTENSION
     Dosage: THERAPY START: LONG TERM
     Route: 048
  9. MINISINTROM [Concomitant]
     Active Substance: ACENOCOUMAROL

REACTIONS (3)
  - Malaise [Recovered/Resolved]
  - Hypotension [Recovered/Resolved]
  - Drug interaction [Unknown]

NARRATIVE: CASE EVENT DATE: 20150209
